FAERS Safety Report 8170654-5 (Version None)
Quarter: 2012Q1

REPORT INFORMATION
  Report Type: 
  Country: None (occurrence: None)
  Receive Date: 20120228
  Receipt Date: 20120216
  Transmission Date: 20120608
  Serious: Yes (Other)
  Sender: FDA-Public Use
  Company Number: AR-ROCHE-1043230

PATIENT
  Sex: Female

DRUGS (1)
  1. LUCENTIS [Suspect]
     Indication: CATARACT
     Route: 050
     Dates: start: 20111101

REACTIONS (2)
  - ASTHENOPIA [None]
  - DIABETES MELLITUS [None]
